FAERS Safety Report 4648943-8 (Version None)
Quarter: 2005Q2

REPORT INFORMATION
  Report Type: 
  Country: None (occurrence: None)
  Receive Date: 20050427
  Receipt Date: 20050411
  Transmission Date: 20051028
  Serious: Yes (Hospitalization)
  Sender: FDA-Public Use
  Company Number: US_0504115281

PATIENT
  Sex: Female

DRUGS (2)
  1. GEMZAR [Suspect]
     Indication: HODGKIN'S DISEASE RECURRENT
     Dosage: 1000 MG/M2 OTHER
  2. VINORELBINE TARTRATE [Concomitant]

REACTIONS (20)
  - AMENORRHOEA [None]
  - BLOOD TEST ABNORMAL [None]
  - BONE MARROW TRANSPLANT [None]
  - CAPILLARY LEAK SYNDROME [None]
  - DIFFICULT TO WEAN FROM VENTILATOR [None]
  - DRUG RESISTANCE [None]
  - ENTEROCOCCAL BACTERAEMIA [None]
  - FEBRILE NEUTROPENIA [None]
  - HYPERSPLENISM [None]
  - HYPOTHYROIDISM [None]
  - JAUNDICE [None]
  - PNEUMONITIS [None]
  - POST PROCEDURAL COMPLICATION [None]
  - REFUSAL OF TREATMENT BY PATIENT [None]
  - REFUSAL OF TREATMENT BY RELATIVE [None]
  - SPLENOMEGALY [None]
  - STAPHYLOCOCCAL SEPSIS [None]
  - STREPTOCOCCAL SEPSIS [None]
  - SURGICAL PROCEDURE REPEATED [None]
  - VIRUS URINE TEST POSITIVE [None]
